FAERS Safety Report 4750058-5 (Version None)
Quarter: 2005Q3

REPORT INFORMATION
  Report Type: 
  Country: None (occurrence: None)
  Receive Date: 20050822
  Receipt Date: 20050809
  Transmission Date: 20060218
  Serious: Yes (Hospitalization)
  Sender: FDA-Public Use
  Company Number: 340001M05NOR

PATIENT
  Age: 36 Year
  Sex: Female

DRUGS (5)
  1. OVIDREL [Suspect]
     Indication: IN VITRO FERTILISATION
     Dosage: 250 MCG, 1 IN 1 DAYS
     Dates: start: 20050808, end: 20050808
  2. GONAL-F [Suspect]
     Indication: IN VITRO FERTILISATION
     Dates: start: 20050728, end: 20050731
  3. GONAL-F [Suspect]
     Indication: IN VITRO FERTILISATION
     Dates: start: 20050801, end: 20050805
  4. GONAL-F [Suspect]
     Indication: IN VITRO FERTILISATION
     Dates: start: 20050806, end: 20050807
  5. SUPRECUR (BUSERELIN ACETATE) [Concomitant]

REACTIONS (5)
  - DIZZINESS [None]
  - DYSPNOEA [None]
  - HEART RATE INCREASED [None]
  - PALPITATIONS [None]
  - TREMOR [None]
